FAERS Safety Report 6467688-5 (Version None)
Quarter: 2009Q4

REPORT INFORMATION
  Report Type: 
  Country: None (occurrence: None)
  Receive Date: 20091202
  Receipt Date: 20091124
  Transmission Date: 20100525
  Serious: Yes (Hospitalization, Disabling, Other)
  Sender: FDA-Public Use
  Company Number: PHHO2009FR12359

PATIENT
  Sex: Female

DRUGS (7)
  1. AFINITOR [Suspect]
     Indication: ENDOMETRIAL CANCER METASTATIC
     Dosage: 10 MG / DAY
     Route: 048
     Dates: start: 20090904, end: 20091006
  2. APROVEL [Concomitant]
  3. LYRICA [Concomitant]
  4. DITROPAN [Concomitant]
  5. DURAGESIC-100 [Concomitant]
  6. ACTIQ [Concomitant]
  7. ANTIGRIPPINE [Concomitant]

REACTIONS (12)
  - ABDOMINAL PAIN [None]
  - ASTHENIA [None]
  - CHEST PAIN [None]
  - DECREASED APPETITE [None]
  - DISEASE PROGRESSION [None]
  - DYSGEUSIA [None]
  - DYSPNOEA [None]
  - EPISTAXIS [None]
  - GENERAL PHYSICAL HEALTH DETERIORATION [None]
  - MUSCULOSKELETAL CHEST PAIN [None]
  - NAUSEA [None]
  - VOMITING [None]
